FAERS Safety Report 4603870-7 (Version None)
Quarter: 2005Q1

REPORT INFORMATION
  Report Type: 
  Country: None (occurrence: None)
  Receive Date: 20050308
  Receipt Date: 20050308
  Transmission Date: 20050727
  Serious: No
  Sender: FDA-Public Use
  Company Number: None

PATIENT
  Sex: Female
  Weight: 45.8133 kg

DRUGS (2)
  1. EFFEXOR XR [Suspect]
     Indication: DEPRESSION
     Dosage: 375 MG   DAILY    ORAL
     Route: 048
     Dates: start: 20041101, end: 20050225
  2. ABILIFY [Concomitant]

REACTIONS (2)
  - EOSINOPHILIA [None]
  - LIVER FUNCTION TEST ABNORMAL [None]
